FAERS Safety Report 9177885 (Version 1)
Quarter: 2012Q4

REPORT INFORMATION
  Report Type: 
  Country: US (occurrence: US)
  Receive Date: 20121015
  Receipt Date: 20121015
  Transmission Date: 20130627
  Serious: Yes (Hospitalization, Other)
  Sender: FDA-Public Use
  Company Number: US-RB-043772-12

PATIENT
  Age: 54 Year
  Sex: Female

DRUGS (8)
  1. SUBOXONE FILM [Suspect]
     Dosage: Suboxone film; dosing details unknown, taken once
     Route: 065
     Dates: start: 2011, end: 2011
  2. SUBOXONE FILM [Suspect]
     Indication: DRUG DEPENDENCE
     Dosage: Suboxone film
     Route: 065
     Dates: start: 2011, end: 20120716
  3. ZOCOR [Concomitant]
     Indication: BLOOD CHOLESTEROL INCREASED
     Route: 065
  4. PAXIL [Concomitant]
     Indication: DEPRESSION
     Route: 065
  5. PRILOSEC [Concomitant]
     Indication: GASTROOESOPHAGEAL REFLUX DISEASE
     Route: 065
  6. NORTRIPTYLINE [Concomitant]
     Indication: INSOMNIA
     Route: 065
  7. ASPIRIN [Concomitant]
     Indication: CARDIOVASCULAR EVENT PROPHYLAXIS
     Route: 065
  8. MULTIVITAMIN [Concomitant]
     Indication: MEDICAL DIET
     Dosage: Dosing details unknown
     Route: 065

REACTIONS (4)
  - Heart valve incompetence [Recovered/Resolved]
  - Condition aggravated [Recovered/Resolved]
  - Substance abuse [Recovered/Resolved]
  - Loss of consciousness [Recovered/Resolved]
